FAERS Safety Report 8498407-9 (Version None)
Quarter: 2012Q3

REPORT INFORMATION
  Report Type: 
  Country: None (occurrence: None)
  Receive Date: 20120709
  Receipt Date: 20120622
  Transmission Date: 20120928
  Serious: No
  Sender: FDA-Public Use
  Company Number: US-AMGEN-USASP2011026362

PATIENT
  Age: 61 Year
  Sex: Female
  Weight: 126.8 kg

DRUGS (1)
  1. ENBREL [Suspect]
     Indication: RHEUMATOID ARTHRITIS
     Dosage: 50 MG, QWK
     Route: 058
     Dates: start: 20110401

REACTIONS (4)
  - ASTHENIA [None]
  - HEADACHE [None]
  - RHEUMATOID ARTHRITIS [None]
  - BURNING SENSATION [None]
